FAERS Safety Report 9077392 (Version 1)
Quarter: 2013Q1

REPORT INFORMATION
  Report Type: Report from Study
  Country: US (occurrence: US)
  Receive Date: 20130130
  Receipt Date: 20130130
  Transmission Date: 20140127
  Serious: No
  Sender: FDA-Public Use
  Company Number: US-ABBOTT-12P-163-0954454-00

PATIENT
  Age: 28 Year
  Sex: Female

DRUGS (4)
  1. HUMIRA 40 MG/0.8 ML PEN [Suspect]
     Indication: CROHN^S DISEASE
     Dosage: LOADING
     Dates: start: 20120708, end: 20120708
  2. HUMIRA 40 MG/0.8 ML PEN [Suspect]
  3. PRILOSEC [Concomitant]
     Indication: ANTIINFLAMMATORY THERAPY
     Dosage: 10MG DAILY
  4. OXYCODONE [Concomitant]
     Indication: PAIN
     Dosage: 5/325 AS NEEDED

REACTIONS (1)
  - Dysgeusia [Not Recovered/Not Resolved]
